FAERS Safety Report 13257118 (Version 1)
Quarter: 2017Q1

REPORT INFORMATION
  Report Type: Spontaneous
  Country: DE (occurrence: DE)
  Receive Date: 20170221
  Receipt Date: 20170221
  Transmission Date: 20170428
  Serious: Yes (Hospitalization)
  Sender: FDA-Public Use
  Company Number: DE-TEVA-740689GER

PATIENT
  Sex: Female

DRUGS (1)
  1. NITROFURANTOIN-RATIOPHARM 100 MG RETARDKAPSELN [Suspect]
     Active Substance: NITROFURANTOIN
     Indication: URINARY TRACT INFECTION
     Route: 048

REACTIONS (10)
  - Cough [Unknown]
  - Pain in extremity [Unknown]
  - Headache [Unknown]
  - Pain in jaw [Unknown]
  - Influenza like illness [Unknown]
  - Malaise [Unknown]
  - Back pain [Unknown]
  - Chills [Unknown]
  - White blood cell count increased [Not Recovered/Not Resolved]
  - Feeling cold [Unknown]
